FAERS Safety Report 6014870-7 (Version None)
Quarter: 2008Q4

REPORT INFORMATION
  Report Type: 
  Country: None (occurrence: None)
  Receive Date: 20081219
  Receipt Date: 20081211
  Transmission Date: 20090506
  Serious: Yes (Other)
  Sender: FDA-Public Use
  Company Number: CA-B.I. PHARMACEUTICALS,INC./RIDGEFIELD-2008-DE-07666GD

PATIENT
  Age: 91 Year
  Sex: Female

DRUGS (13)
  1. IPRATROPIUMBROMID [Suspect]
     Indication: DYSPNOEA
     Dosage: 3000MCG
     Route: 055
  2. IPRATROPIUMBROMID [Suspect]
     Indication: COUGH
  3. ALBUTEROL SULFATE [Suspect]
     Indication: DYSPNOEA
     Dosage: 30MG
     Route: 055
  4. ALBUTEROL SULFATE [Suspect]
     Indication: COUGH
  5. OMEPRAZOLE [Concomitant]
     Dosage: 20MG
  6. CALCIUM CARBONATE [Concomitant]
     Dosage: 500MG
  7. VITAMIN D [Concomitant]
     Dosage: 400U
  8. CELECOXIB [Concomitant]
     Dosage: 100-200 MG
  9. FLUTICASONE PROPIONATE [Concomitant]
     Dosage: 250-500 MCG
     Route: 055
  10. SALMETEROL [Concomitant]
     Dosage: 100-200 MCG
     Route: 055
  11. ACETAMINOPHEN [Concomitant]
     Dosage: 325-650 MG
  12. IBUPROFEN [Concomitant]
     Dosage: 400MG
  13. PREGABALIN [Concomitant]
     Indication: OSTEOARTHRITIS
     Dosage: 50MG

REACTIONS (6)
  - ANXIETY [None]
  - CHEST PAIN [None]
  - CONDITION AGGRAVATED [None]
  - DYSPNOEA [None]
  - PALPITATIONS [None]
  - TACHYCARDIA [None]
